FAERS Safety Report 5278846-X (Version None)
Quarter: 2007Q1

REPORT INFORMATION
  Report Type: 
  Country: None (occurrence: None)
  Receive Date: 20070328
  Receipt Date: 20070321
  Transmission Date: 20070707
  Serious: Yes (Hospitalization)
  Sender: FDA-Public Use
  Company Number: US-JNJFOC-20070305330

PATIENT
  Sex: Male
  Weight: 106.14 kg

DRUGS (7)
  1. DURAGESIC-100 [Suspect]
     Indication: BACK PAIN
     Dosage: 50UG/HR PLUS 12.5UG/HR PATCH
     Route: 062
  2. ZESTRIL [Concomitant]
     Indication: BLOOD PRESSURE
     Route: 048
  3. MOBIC [Concomitant]
     Indication: ARTHRITIS
     Route: 048
  4. REMERON [Concomitant]
     Indication: DEPRESSION
     Route: 048
  5. PROVIGIL [Concomitant]
     Indication: SOMNOLENCE
     Route: 048
  6. LORTAB [Concomitant]
     Indication: PAIN
     Route: 048
  7. CARDURA [Concomitant]
     Route: 048

REACTIONS (2)
  - DEEP VEIN THROMBOSIS [None]
  - DERMATITIS CONTACT [None]
